FAERS Safety Report 10950643 (Version 1)
Quarter: 2015Q1

REPORT INFORMATION
  Report Type: Spontaneous
  Country: AU (occurrence: AU)
  Receive Date: 20150324
  Receipt Date: 20150324
  Transmission Date: 20150721
  Serious: Yes (Death, Other)
  Sender: FDA-Public Use
  Company Number: AU-MYLANLABS-2015M1009379

PATIENT

DRUGS (1)
  1. AZATHIOPRINE. [Suspect]
     Active Substance: AZATHIOPRINE
     Dosage: 440G CUMULATIVE DOSE
     Route: 065

REACTIONS (4)
  - Pancytopenia [Unknown]
  - Hepatosplenic T-cell lymphoma [Fatal]
  - Weight decreased [Unknown]
  - Malaise [Unknown]
